FAERS Safety Report 12697324 (Version 1)
Quarter: 2016Q3

REPORT INFORMATION
  Report Type: Spontaneous
  Country: US (occurrence: None)
  Receive Date: 20160829
  Receipt Date: 20160829
  Transmission Date: 20161109
  Serious: No
  Sender: FDA-Public Use
  Company Number: None

PATIENT
  Age: 84 Year
  Sex: Female
  Weight: 54.9 kg

DRUGS (23)
  1. NEURONTIN [Concomitant]
     Active Substance: GABAPENTIN
  2. POTASSIUM CHLORIDE SA (K-DUR; KLOR-CON M) [Concomitant]
  3. ROXICODONE [Concomitant]
     Active Substance: OXYCODONE HYDROCHLORIDE
  4. OXYCODONE-ACETAMINOPHEN (PERCOCET) [Concomitant]
  5. CARVEDILOL (COREG) [Concomitant]
  6. WARFARIN, 2MG [Suspect]
     Active Substance: WARFARIN
     Indication: ATRIAL FIBRILLATION
     Route: 048
  7. INSULIN LISPRO (HUMALOG) [Concomitant]
  8. CLONIDINE (CATAPRES) [Concomitant]
  9. POLYETHYLENE GLYCOL (GLYCOLAX) POWDER [Concomitant]
  10. LANTUS [Concomitant]
     Active Substance: INSULIN GLARGINE
  11. MAGNESIUM HYDROXIDE (MILK OF MAGNESIA) [Concomitant]
  12. LIPITOR [Concomitant]
     Active Substance: ATORVASTATIN CALCIUM
  13. AVAPRO [Concomitant]
     Active Substance: IRBESARTAN
  14. CHOLECALCIFEROL (VITAMIN D-3) [Concomitant]
  15. PLAVIX [Concomitant]
     Active Substance: CLOPIDOGREL BISULFATE
  16. CALCITONIN (MIACALCIN) [Concomitant]
  17. MELATONIN [Concomitant]
     Active Substance: MELATONIN
  18. ASPIRIN. [Concomitant]
     Active Substance: ASPIRIN
  19. LACTOBACILLUS (CULTURELLE) [Concomitant]
  20. ZYPREXA [Concomitant]
     Active Substance: OLANZAPINE
  21. PRED FORTE [Concomitant]
     Active Substance: PREDNISOLONE ACETATE
  22. NORVASC [Concomitant]
     Active Substance: AMLODIPINE BESYLATE
  23. COLACE [Concomitant]
     Active Substance: DOCUSATE SODIUM

REACTIONS (4)
  - Fall [None]
  - Haematoma [None]
  - International normalised ratio increased [None]
  - Multiple injuries [None]

NARRATIVE: CASE EVENT DATE: 20160722
